FAERS Safety Report 21486248 (Version 1)
Quarter: 2022Q4

REPORT INFORMATION
  Report Type: Spontaneous
  Country: US (occurrence: None)
  Receive Date: 20221020
  Receipt Date: 20221020
  Transmission Date: 20230113
  Serious: No
  Sender: FDA-Public Use
  Company Number: None

PATIENT
  Age: 57 Year
  Sex: Male
  Weight: 101.7 kg

DRUGS (1)
  1. KRYSTEXXA [Suspect]
     Active Substance: PEGLOTICASE
     Indication: Gout
     Dosage: OTHER FREQUENCY : Q2 WEEKS;?
     Route: 042

REACTIONS (3)
  - Pruritus [None]
  - Rash [None]
  - Drug hypersensitivity [None]

NARRATIVE: CASE EVENT DATE: 20221018
